FAERS Safety Report 6121406-9 (Version None)
Quarter: 2009Q1

REPORT INFORMATION
  Report Type: 
  Country: None (occurrence: None)
  Receive Date: 20090317
  Receipt Date: 20090306
  Transmission Date: 20090719
  Serious: Yes (Other)
  Sender: FDA-Public Use
  Company Number: ES-JNJFOC-20080305963

PATIENT
  Sex: Female
  Weight: 55.4 kg

DRUGS (10)
  1. PREZISTA [Suspect]
     Indication: HIV INFECTION
     Route: 048
  2. RITONAVIR [Suspect]
     Indication: HIV INFECTION
     Route: 048
  3. TRUVADA [Suspect]
     Route: 048
  4. TRUVADA [Suspect]
     Indication: HIV INFECTION
     Route: 048
  5. COMBIVIR [Concomitant]
     Indication: HIV INFECTION
     Route: 048
  6. KALETRA [Concomitant]
     Indication: HIV INFECTION
     Route: 048
  7. ANAESTHESIA [Concomitant]
     Indication: PAIN
     Route: 008
  8. ZIDOVUDINE [Concomitant]
     Indication: PROPHYLAXIS
     Route: 042
  9. FOLIC ACID [Concomitant]
  10. FERRIC SULPHATE [Concomitant]

REACTIONS (2)
  - DRUG EXPOSURE DURING PREGNANCY [None]
  - PREMATURE BABY [None]
